FAERS Safety Report 4879853-9 (Version None)
Quarter: 2006Q1

REPORT INFORMATION
  Report Type: 
  Country: None (occurrence: None)
  Receive Date: 20060113
  Receipt Date: 20051121
  Transmission Date: 20060701
  Serious: Yes (Life-Threatening, Hospitalization)
  Sender: FDA-Public Use
  Company Number: US-BOEHRINGER INGELHEIM PHARMACEUTICALS, INC.-2005-BP-20558BP

PATIENT
  Sex: Female

DRUGS (8)
  1. SPIRIVA [Suspect]
     Indication: ASTHMA
     Route: 055
     Dates: start: 20050920, end: 20051112
  2. SPIRIVA [Suspect]
     Indication: ASTHMA EXACERBATION PROPHYLAXIS
  3. SINGULAIR [Concomitant]
     Route: 048
  4. ALBUTEROL [Concomitant]
     Route: 055
  5. SEREVENT [Concomitant]
     Dates: start: 20051012
  6. ALBUTEROL SULFATE [Concomitant]
  7. CLARITIN D-24 [Concomitant]
  8. DESTELIN [Concomitant]
     Route: 045

REACTIONS (6)
  - ASTHMA [None]
  - BRONCHOSPASM [None]
  - CHEST PAIN [None]
  - DYSPNOEA [None]
  - MYALGIA [None]
  - TACHYCARDIA [None]
